FAERS Safety Report 19720505 (Version 2)
Quarter: 2021Q4

REPORT INFORMATION
  Report Type: Spontaneous
  Country: None (occurrence: US)
  Receive Date: 20210818
  Receipt Date: 20211124
  Transmission Date: 20220303
  Serious: No
  Sender: FDA-Public Use
  Company Number: US-AKCEA THERAPEUTICS, INC.-2021IS001454

PATIENT
  Age: 73 Year
  Sex: Male

DRUGS (2)
  1. TEGSEDI [Suspect]
     Active Substance: INOTERSEN SODIUM
     Indication: Hereditary neuropathic amyloidosis
     Route: 058
     Dates: start: 20181213
  2. DEVICE [Suspect]
     Active Substance: DEVICE

REACTIONS (6)
  - Platelet count decreased [Unknown]
  - White blood cells urine positive [Unknown]
  - Urinary casts [Unknown]
  - Urine protein/creatinine ratio abnormal [Unknown]
  - Red cell distribution width abnormal [Unknown]
  - Urine abnormality [Unknown]

NARRATIVE: CASE EVENT DATE: 20210818
